FAERS Safety Report 7658288-X (Version None)
Quarter: 2011Q3

REPORT INFORMATION
  Report Type: 
  Country: None (occurrence: None)
  Receive Date: 20110802
  Receipt Date: 20110720
  Transmission Date: 20111222
  Serious: Yes (Hospitalization)
  Sender: FDA-Public Use
  Company Number: 2011AP001558

PATIENT
  Age: 68 Year
  Sex: Female

DRUGS (8)
  1. ATENOLOL [Concomitant]
  2. ACETAMINOPHEN [Concomitant]
  3. AMITRIPTYLINE HYDROCHLORIDE [Concomitant]
  4. BENDROFLUMETHIAZIDE (BENDROFLUMETHIAZIDE) [Concomitant]
  5. SIMVASTATIN [Concomitant]
  6. ASPIRIN [Concomitant]
  7. ENALAPRIL MALEATE [Concomitant]
  8. TERBINAFINE HCL [Suspect]
     Indication: TINEA PEDIS
     Dosage: 250 MG; QD; PO
     Route: 048
     Dates: start: 20101129, end: 20110708

REACTIONS (2)
  - JAUNDICE CHOLESTATIC [None]
  - CHOLESTASIS [None]
